FAERS Safety Report 10438775 (Version 1)
Quarter: 2014Q3

REPORT INFORMATION
  Report Type: Spontaneous
  Country: US (occurrence: US)
  Receive Date: 20140908
  Receipt Date: 20140908
  Transmission Date: 20150326
  Serious: No
  Sender: FDA-Public Use
  Company Number: US-BRISTOL-MYERS SQUIBB COMPANY-20576849

PATIENT
  Age: 67 Year
  Sex: Female
  Weight: 66.66 kg

DRUGS (7)
  1. PROZAC [Concomitant]
     Active Substance: FLUOXETINE HYDROCHLORIDE
  2. AMANTADINE [Concomitant]
     Active Substance: AMANTADINE
  3. CALCIUM [Concomitant]
     Active Substance: CALCIUM
  4. VITAMIN D3 [Concomitant]
     Active Substance: CHOLECALCIFEROL
  5. ABILIFY [Suspect]
     Active Substance: ARIPIPRAZOLE
     Dosage: AT NIGHT
  6. ATORVASTATIN [Concomitant]
     Active Substance: ATORVASTATIN
  7. ATENOLOL. [Concomitant]
     Active Substance: ATENOLOL

REACTIONS (2)
  - Tremor [Unknown]
  - Weight increased [Unknown]
